FAERS Safety Report 6170522-4 (Version None)
Quarter: 2009Q2

REPORT INFORMATION
  Report Type: 
  Country: None (occurrence: None)
  Receive Date: 20090427
  Receipt Date: 20090427
  Transmission Date: 20091009
  Serious: Yes (Hospitalization)
  Sender: FDA-Public Use
  Company Number: None

PATIENT
  Age: 57 Year
  Sex: Female

DRUGS (8)
  1. MORPHINE SR [Suspect]
     Indication: PAIN
     Dosage: 80 MG PO BID, HOME
  2. DECADRON [Concomitant]
  3. BACTRIM [Concomitant]
  4. COLACE [Concomitant]
  5. MIRALAX [Concomitant]
  6. NYSTATIN [Concomitant]
  7. PREVACID [Concomitant]
  8. SENNA [Concomitant]

REACTIONS (5)
  - BLOOD POTASSIUM INCREASED [None]
  - HYPOGLYCAEMIA [None]
  - MENTAL STATUS CHANGES [None]
  - NEUROGENIC BLADDER [None]
  - RENAL FAILURE ACUTE [None]
